FAERS Safety Report 6635149-6 (Version None)
Quarter: 2010Q1

REPORT INFORMATION
  Report Type: 
  Country: None (occurrence: None)
  Receive Date: 20100312
  Receipt Date: 20100312
  Transmission Date: 20100710
  Serious: Yes (Other)
  Sender: FDA-Public Use
  Company Number: None

PATIENT
  Age: 60 Year
  Sex: Female
  Weight: 63.5036 kg

DRUGS (2)
  1. PROAIR HFA [Suspect]
     Indication: ASTHMA
     Dosage: TWO PUFFS 4 TIMES DAY
     Dates: start: 20090501, end: 20100301
  2. VENTOLIN [Suspect]
     Dosage: TWO PUFFS 4 TIMES DAY

REACTIONS (3)
  - ASTHMA [None]
  - HYPERSENSITIVITY [None]
  - PRODUCT QUALITY ISSUE [None]
